FAERS Safety Report 8517107-X (Version None)
Quarter: 2012Q3

REPORT INFORMATION
  Report Type: 
  Country: None (occurrence: None)
  Receive Date: 20120718
  Receipt Date: 20120716
  Transmission Date: 20120928
  Serious: Yes (Other)
  Sender: FDA-Public Use
  Company Number: US-PFIZER INC-2012170916

PATIENT
  Sex: Female

DRUGS (1)
  1. TIKOSYN [Suspect]
     Dosage: UNK

REACTIONS (7)
  - SWELLING [None]
  - INJURY [None]
  - FALL [None]
  - RIB FRACTURE [None]
  - DIZZINESS [None]
  - LIGAMENT RUPTURE [None]
  - CONTUSION [None]
